FAERS Safety Report 17029815 (Version 2)
Quarter: 2019Q4

REPORT INFORMATION
  Report Type: Report from Study
  Country: US (occurrence: US)
  Receive Date: 20191114
  Receipt Date: 20191130
  Transmission Date: 20200122
  Serious: Yes (Hospitalization)
  Sender: FDA-Public Use
  Company Number: US-ROCHE-1952840

PATIENT
  Age: 43 Year
  Sex: Female
  Weight: 61 kg

DRUGS (95)
  1. PLACEBO [Suspect]
     Active Substance: UNSPECIFIED INGREDIENT
     Indication: RELAPSING-REMITTING MULTIPLE SCLEROSIS
     Route: 058
     Dates: start: 20120509
  2. OCRELIZUMAB. [Suspect]
     Active Substance: OCRELIZUMAB
     Dosage: WEEK 72, DOSE: 600 MG (520 ML)
     Route: 042
     Dates: start: 20130925, end: 20130925
  3. DICLOFENAC [Concomitant]
     Active Substance: DICLOFENAC
     Indication: MUSCLE SPASMS
  4. GABAPENTIN. [Concomitant]
     Active Substance: GABAPENTIN
     Indication: RESTLESS LEGS SYNDROME
     Route: 065
     Dates: start: 20170317
  5. ACETAMINOPHEN. [Concomitant]
     Active Substance: ACETAMINOPHEN
     Dosage: DOSE: 1 TABLET
     Route: 065
     Dates: start: 20141218, end: 20141225
  6. EXCEDRIN MIGRAINE [Concomitant]
     Active Substance: ACETAMINOPHEN\ASPIRIN\CAFFEINE
     Indication: MIGRAINE
     Dosage: DOSE: 1 TABLET
     Route: 048
     Dates: start: 2008
  7. BACLOFEN. [Concomitant]
     Active Substance: BACLOFEN
     Route: 048
     Dates: start: 20130926
  8. PHILLIPS STOOL SOFTENER BULK DOCUSATE [Concomitant]
     Active Substance: DOCUSATE SODIUM
     Dosage: DOSE: 2 TABLET
     Route: 048
     Dates: start: 20140226
  9. NASACORT [Concomitant]
     Active Substance: TRIAMCINOLONE ACETONIDE
     Indication: SEASONAL ALLERGY
     Route: 050
     Dates: start: 20140402
  10. AMOXICILLIN. [Concomitant]
     Active Substance: AMOXICILLIN
     Indication: TOOTH EXTRACTION
  11. OCRELIZUMAB. [Suspect]
     Active Substance: OCRELIZUMAB
     Dosage: WEEK 96, 520 ML (600 MG)
     Route: 042
     Dates: start: 20160127, end: 20160127
  12. OCRELIZUMAB. [Suspect]
     Active Substance: OCRELIZUMAB
     Dosage: WEEK 120, 520 ML (600 MG)
     Route: 042
     Dates: start: 20160718, end: 20160718
  13. EPHEDRINE. [Concomitant]
     Active Substance: EPHEDRINE
     Indication: MIGRAINE
     Dosage: AS REQUIRED
     Route: 065
     Dates: start: 2008
  14. VITAMIN D3 [Concomitant]
     Active Substance: CHOLECALCIFEROL
     Route: 048
     Dates: start: 201202
  15. ALBUTEROL [SALBUTAMOL] [Concomitant]
     Active Substance: ALBUTEROL
     Indication: SEASONAL ALLERGY
     Route: 055
     Dates: start: 20120520
  16. METHYLPREDNISOLONE. [Concomitant]
     Active Substance: METHYLPREDNISOLONE
     Dosage: NEXT DOSES ON 23/MAY/2012, 24/OCT/2012, 10/APR/2013, 25/SEP/2013, 26/MAR/2014, 09/APR/2014, 08/SEP/2
     Route: 065
     Dates: start: 20120509
  17. TYLENOL [Concomitant]
     Active Substance: ACETAMINOPHEN
     Route: 065
     Dates: start: 20170414
  18. HYDROCODONE [Concomitant]
     Active Substance: HYDROCODONE
     Indication: MIGRAINE
     Dosage: DOSE: 1 TABLET
     Route: 065
     Dates: start: 20141218, end: 20141225
  19. AMOXICILLIN. [Concomitant]
     Active Substance: AMOXICILLIN
     Indication: EAR INFECTION
     Route: 048
     Dates: start: 20190429, end: 20190509
  20. HYDROCODONE/ACETAMINOPHEN [Concomitant]
     Active Substance: ACETAMINOPHEN\HYDROCODONE
     Indication: TOOTH EXTRACTION
     Route: 048
     Dates: start: 20141218, end: 20181225
  21. OCRELIZUMAB. [Suspect]
     Active Substance: OCRELIZUMAB
     Indication: RELAPSING-REMITTING MULTIPLE SCLEROSIS
     Dosage: GIVEN AS DUAL INFUSIONS OF OCRELIZUMAB 300 MG (200 ML) ON DAY 1 OF THE FIRST 24-WEEK TREATMENT DOSE,
     Route: 042
     Dates: start: 20120509, end: 20120509
  22. OCRELIZUMAB. [Suspect]
     Active Substance: OCRELIZUMAB
     Dosage: WEEK 72, 520 ML (600 MG)
     Route: 042
     Dates: start: 20150810, end: 20150810
  23. VITAMIN D3 [Concomitant]
     Active Substance: CHOLECALCIFEROL
     Route: 048
     Dates: start: 201702
  24. METOPROLOL SUCCINATE. [Concomitant]
     Active Substance: METOPROLOL SUCCINATE
     Indication: ARRHYTHMIA
     Route: 048
     Dates: start: 20150628, end: 20150730
  25. FLONASE [Concomitant]
     Active Substance: FLUTICASONE PROPIONATE
     Indication: RHINITIS ALLERGIC
     Dosage: DOSE: 1 SPRAY
     Route: 050
     Dates: start: 20130417, end: 20130430
  26. LYRICA [Concomitant]
     Active Substance: PREGABALIN
     Route: 048
     Dates: start: 20120704, end: 20120705
  27. BACLOFEN. [Concomitant]
     Active Substance: BACLOFEN
     Route: 048
     Dates: start: 20140202, end: 20140209
  28. DRAMAMINE [Concomitant]
     Active Substance: DIMENHYDRINATE
     Indication: NAUSEA
     Route: 048
     Dates: start: 20140120, end: 20140123
  29. AMOXICILLIN;CLAVULANIC ACID [Concomitant]
     Active Substance: AMOXICILLIN\CLAVULANIC ACID
     Indication: TOOTH ABSCESS
     Dosage: DOSE: 1 TABLET
     Route: 048
     Dates: start: 20141030, end: 20141108
  30. PHENERGAN [Concomitant]
     Active Substance: PROMETHAZINE HYDROCHLORIDE
     Indication: NAUSEA
     Route: 048
     Dates: start: 20170524
  31. OCRELIZUMAB. [Suspect]
     Active Substance: OCRELIZUMAB
     Dosage: WEEK 144, THIS WAS THE MOST RECENT DOSE PRIOR TO SAE?520 ML (600 MG)
     Route: 042
     Dates: start: 20170104, end: 20170104
  32. VICKS NYQUIL [Concomitant]
     Active Substance: ACETAMINOPHEN\DEXTROMETHORPHAN HYDROBROMIDE\DOXYLAMINE SUCCINATE
     Route: 065
     Dates: start: 201501
  33. CITALOPRAM HYDROBROMIDE. [Concomitant]
     Active Substance: CITALOPRAM HYDROBROMIDE
     Indication: DEPRESSION
     Route: 065
     Dates: start: 200503
  34. METOPROLOL TARTRATE. [Concomitant]
     Active Substance: METOPROLOL TARTRATE
     Indication: ARRHYTHMIA
     Dosage: 1 TABLET
     Route: 048
     Dates: start: 20150626, end: 20150627
  35. FLONASE [Concomitant]
     Active Substance: FLUTICASONE PROPIONATE
     Indication: SINUSITIS
     Route: 065
     Dates: start: 20170118
  36. DIPHENHYDRAMINE;IBUPROFEN [Concomitant]
     Active Substance: DIPHENHYDRAMINE\IBUPROFEN
     Indication: RESTLESS LEGS SYNDROME
     Route: 048
     Dates: start: 200006, end: 20130815
  37. TOBRAMYCIN. [Concomitant]
     Active Substance: TOBRAMYCIN
     Indication: CONJUNCTIVITIS
     Dosage: 1 DROP
     Route: 047
     Dates: start: 20120913, end: 20120918
  38. AUGMENTIN [Concomitant]
     Active Substance: AMOXICILLIN\CLAVULANATE POTASSIUM
     Indication: UPPER RESPIRATORY TRACT INFECTION
     Route: 048
     Dates: start: 20170303, end: 20170324
  39. BACLOFEN. [Concomitant]
     Active Substance: BACLOFEN
     Indication: MUSCLE SPASMS
     Route: 048
     Dates: start: 20130117, end: 20130925
  40. VICKS DAYQUIL [Concomitant]
     Active Substance: DEXTROMETHORPHAN HYDROBROMIDE\GUAIFENESIN
     Indication: SEASONAL ALLERGY
     Route: 048
     Dates: start: 199501
  41. PLACEBO [Suspect]
     Active Substance: UNSPECIFIED INGREDIENT
     Dosage: MOST RECENT DOSE RECEIVED ON 07/MAR/2014
     Route: 058
     Dates: start: 20140210
  42. OCRELIZUMAB. [Suspect]
     Active Substance: OCRELIZUMAB
     Dosage: WEEK 48, 520 ML (600 MG)
     Route: 042
     Dates: start: 20150225, end: 20150225
  43. SINGULAIR [Concomitant]
     Active Substance: MONTELUKAST SODIUM
     Route: 065
     Dates: start: 20170118
  44. AMBIEN [Concomitant]
     Active Substance: ZOLPIDEM TARTRATE
     Indication: INSOMNIA
     Dosage: AS REQUIRED
     Route: 065
     Dates: start: 20130816
  45. ALLEGRA ALLERGY [Concomitant]
     Active Substance: FEXOFENADINE HYDROCHLORIDE
     Indication: SEASONAL ALLERGY
     Route: 048
     Dates: start: 201009
  46. METOPROLOL SUCCINATE. [Concomitant]
     Active Substance: METOPROLOL SUCCINATE
     Route: 048
     Dates: start: 20150730
  47. ADVIL [IBUPROFEN] [Concomitant]
     Active Substance: IBUPROFEN
     Indication: HEADACHE
     Route: 048
     Dates: start: 199204, end: 20170413
  48. DIPHENHYDRAMINE. [Concomitant]
     Active Substance: DIPHENHYDRAMINE
     Dosage: NEXT DOSES ON 23/MAY/2012, 24/OCT/2012, 10/APR/2013, 25/SEP/2013, 26/MAR/2014, 09/APR/2014, 08/SEP/2
     Route: 065
     Dates: start: 20120509
  49. LYRICA [Concomitant]
     Active Substance: PREGABALIN
     Indication: RESTLESS LEGS SYNDROME
     Route: 065
     Dates: start: 201511, end: 20170208
  50. TYLENOL [Concomitant]
     Active Substance: ACETAMINOPHEN
     Indication: HEADACHE
     Route: 048
     Dates: start: 199211
  51. MIRALAX [Concomitant]
     Active Substance: POLYETHYLENE GLYCOL 3350
     Indication: CONSTIPATION
     Route: 048
     Dates: start: 201405, end: 201406
  52. TOBRAMYCIN. [Concomitant]
     Active Substance: TOBRAMYCIN
     Dosage: 1 DROP
     Route: 065
     Dates: start: 20150419, end: 20150423
  53. AUGMENTIN [Concomitant]
     Active Substance: AMOXICILLIN\CLAVULANATE POTASSIUM
     Indication: CONJUNCTIVITIS
     Route: 048
     Dates: start: 20161123, end: 20161130
  54. AMOXICILLIN. [Concomitant]
     Active Substance: AMOXICILLIN
     Indication: SINUSITIS
     Route: 048
     Dates: start: 20141219, end: 20141225
  55. BENZONATATE. [Concomitant]
     Active Substance: BENZONATATE
     Indication: COUGH
     Route: 065
     Dates: start: 20160205, end: 20160210
  56. VENTOLIN HFA [Concomitant]
     Active Substance: ALBUTEROL SULFATE
     Indication: COUGH
     Dosage: 2 PUFFAS, 4-6 % INHALATION
     Route: 065
     Dates: start: 20170111, end: 20170118
  57. OCRELIZUMAB. [Suspect]
     Active Substance: OCRELIZUMAB
     Dosage: SINGLE INFUSION ON DAY 1 FOR EACH 24-WEEK TREATMENT DOSE, WEEK 24?600 MG (500 ML)
     Route: 042
     Dates: start: 20121024, end: 20121024
  58. OCRELIZUMAB. [Suspect]
     Active Substance: OCRELIZUMAB
     Indication: RELAPSING-REMITTING MULTIPLE SCLEROSIS
     Dosage: WEEK 0, 260 ML (300 MG), DAY 1 OF FIRST 24 WEEK CYCLE
     Route: 042
     Dates: start: 20140326, end: 20140326
  59. OCRELIZUMAB. [Suspect]
     Active Substance: OCRELIZUMAB
     Dosage: WEEK 24, 520 ML (600 MG)
     Route: 042
     Dates: start: 20140908, end: 20140908
  60. CITALOPRAM HYDROBROMIDE. [Concomitant]
     Active Substance: CITALOPRAM HYDROBROMIDE
     Route: 065
     Dates: start: 201503
  61. ACETAMINOPHEN. [Concomitant]
     Active Substance: ACETAMINOPHEN
     Dosage: NEXT DOSES ON 23/MAY/2012, 24/OCT/2012, 10/APR/2013, 25/SEP/2013, 26/MAR/2014, 09/APR/2014, 08/SEP/2
     Route: 048
     Dates: start: 20120509
  62. LYRICA [Concomitant]
     Active Substance: PREGABALIN
     Indication: LOWER LIMB FRACTURE
     Route: 048
     Dates: start: 20121126, end: 20150411
  63. PROZAC [Concomitant]
     Active Substance: FLUOXETINE HYDROCHLORIDE
     Indication: DEPRESSION
     Route: 048
     Dates: start: 2010, end: 20121127
  64. TOPROL XL [Concomitant]
     Active Substance: METOPROLOL SUCCINATE
     Indication: ARRHYTHMIA
     Route: 065
     Dates: start: 20111103, end: 20130123
  65. TOPROL XL [Concomitant]
     Active Substance: METOPROLOL SUCCINATE
     Dosage: PRN
     Route: 048
     Dates: start: 20130124, end: 20150627
  66. HYDROCODONE [Concomitant]
     Active Substance: HYDROCODONE
     Route: 048
     Dates: start: 20140809, end: 20140809
  67. STIOLTO RESPIMAT [Concomitant]
     Active Substance: OLODATEROL HYDROCHLORIDE\TIOTROPIUM BROMIDE MONOHYDRATE
     Indication: COUGH
     Dosage: 2 PUFFS
     Route: 065
     Dates: start: 20170111, end: 20170118
  68. AZITHROMYCIN ANHYDROUS. [Concomitant]
     Active Substance: AZITHROMYCIN ANHYDROUS
     Indication: UPPER RESPIRATORY TRACT INFECTION
     Route: 048
     Dates: start: 20170116, end: 20170120
  69. LACTATED RINGERS SOLUTION [Concomitant]
     Active Substance: CALCIUM CHLORIDE\POTASSIUM CHLORIDE\SODIUM CHLORIDE\SODIUM LACTATE
     Route: 042
     Dates: start: 20170615, end: 20170615
  70. PROMETHAZINE [Concomitant]
     Active Substance: PROMETHAZINE HYDROCHLORIDE
     Indication: MIGRAINE
     Route: 048
     Dates: start: 201909
  71. OCRELIZUMAB. [Suspect]
     Active Substance: OCRELIZUMAB
     Dosage: GIVEN AS DUAL INFUSIONS OF OCRELIZUMAB 300 MG (200 ML) ON DAY 1 OF THE FIRST 24-WEEK TREATMENT DOSE,
     Route: 042
     Dates: start: 20120523, end: 20120523
  72. OCRELIZUMAB. [Suspect]
     Active Substance: OCRELIZUMAB
     Dosage: WEEK 48, DOSE: 600 MG (520 ML)
     Route: 042
     Dates: start: 20130410, end: 20130410
  73. OCRELIZUMAB. [Suspect]
     Active Substance: OCRELIZUMAB
     Dosage: WEEK 2, 260 ML (300 MG), DAY 15 OF FIRST 24 WEEK CYCLE
     Route: 042
     Dates: start: 20140409, end: 20140409
  74. DICLOFENAC [Concomitant]
     Active Substance: DICLOFENAC
     Indication: MUSCLE SPASMS
     Route: 065
     Dates: start: 20130926
  75. VICKS NYQUIL [Concomitant]
     Active Substance: ACETAMINOPHEN\DEXTROMETHORPHAN HYDROBROMIDE\DOXYLAMINE SUCCINATE
     Route: 048
     Dates: start: 20190703, end: 20190708
  76. CITALOPRAM HYDROBROMIDE. [Concomitant]
     Active Substance: CITALOPRAM HYDROBROMIDE
     Route: 065
     Dates: start: 20130820, end: 20150301
  77. METOPROLOL TARTRATE. [Concomitant]
     Active Substance: METOPROLOL TARTRATE
     Route: 048
     Dates: start: 20150730
  78. ADVIL [IBUPROFEN] [Concomitant]
     Active Substance: IBUPROFEN
     Route: 065
     Dates: start: 20170414
  79. LYRICA [Concomitant]
     Active Substance: PREGABALIN
     Dosage: DOSE: 1 CAPSULE
     Route: 048
     Dates: start: 20120130, end: 20120703
  80. AUGMENTIN [Concomitant]
     Active Substance: AMOXICILLIN\CLAVULANATE POTASSIUM
     Indication: SINUSITIS
     Route: 048
     Dates: start: 20130418, end: 20130424
  81. VICKS DAYQUIL [Concomitant]
     Active Substance: DEXTROMETHORPHAN HYDROBROMIDE\GUAIFENESIN
     Route: 048
     Dates: start: 20190703, end: 20190708
  82. OCRELIZUMAB. [Suspect]
     Active Substance: OCRELIZUMAB
     Dosage: WEEK 168, 520 ML (600 MG)
     Route: 042
     Dates: start: 20170816, end: 20170816
  83. CITALOPRAM HYDROBROMIDE. [Concomitant]
     Active Substance: CITALOPRAM HYDROBROMIDE
     Route: 048
     Dates: start: 20121128, end: 201305
  84. METOPROLOL SUCCINATE. [Concomitant]
     Active Substance: METOPROLOL SUCCINATE
     Route: 048
     Dates: start: 20130124, end: 20150627
  85. CHLORPHENIRAMINE [CHLORPHENAMINE] [Concomitant]
     Active Substance: CHLORPHENIRAMINE
     Indication: RHINITIS ALLERGIC
     Route: 048
     Dates: start: 20170118
  86. GABAPENTIN. [Concomitant]
     Active Substance: GABAPENTIN
     Indication: LOWER LIMB FRACTURE
     Route: 048
     Dates: start: 20170209, end: 20170316
  87. ADVIL [IBUPROFEN] [Concomitant]
     Active Substance: IBUPROFEN
     Route: 065
     Dates: start: 201204, end: 20170413
  88. ADVIL [IBUPROFEN] [Concomitant]
     Active Substance: IBUPROFEN
     Dosage: DOSE: 4 TABLET
     Route: 065
     Dates: start: 20170414
  89. PEPCID AC [Concomitant]
     Active Substance: FAMOTIDINE
     Indication: DYSPEPSIA
     Route: 048
     Dates: start: 200904
  90. SUDAFED [Concomitant]
     Active Substance: PSEUDOEPHEDRINE HYDROCHLORIDE
     Indication: SEASONAL ALLERGY
     Dosage: 30 MG/5 ML
     Route: 048
     Dates: start: 201009
  91. CHERATUSSIN AC [Concomitant]
     Active Substance: CODEINE PHOSPHATE\GUAIFENESIN
     Indication: SEASONAL ALLERGY
     Dosage: DOSE: 1 TEASPOON
     Route: 048
     Dates: start: 201202, end: 201302
  92. PROZAC [Concomitant]
     Active Substance: FLUOXETINE HYDROCHLORIDE
     Indication: ANXIETY
  93. AUGMENTIN [Concomitant]
     Active Substance: AMOXICILLIN\CLAVULANATE POTASSIUM
     Indication: TOOTHACHE
     Dosage: DOSE: 1 TABLET
     Route: 048
     Dates: start: 20121126, end: 20121203
  94. BACLOFEN. [Concomitant]
     Active Substance: BACLOFEN
     Indication: MUSCLE SPASMS
     Route: 048
     Dates: start: 20120801, end: 20130116
  95. BENZONATATE. [Concomitant]
     Active Substance: BENZONATATE
     Dosage: PRN
     Route: 065
     Dates: start: 20170109, end: 20170111

REACTIONS (1)
  - Dysmenorrhoea [Recovered/Resolved]

NARRATIVE: CASE EVENT DATE: 20170615
